FAERS Safety Report 11072536 (Version 2)
Quarter: 2015Q2

REPORT INFORMATION
  Report Type: Spontaneous
  Country: JP (occurrence: None)
  Receive Date: 20150424
  Receipt Date: 20150505
  Transmission Date: 20150821
  Serious: Yes (Other)
  Sender: FDA-Public Use
  Company Number: 2015FE01273

PATIENT
  Age: 88 Year
  Sex: Male
  Weight: 58 kg

DRUGS (6)
  1. NU-LOTAN (LOSARTAN POTASSIUM) [Concomitant]
  2. GONAX (DEGARELIX) POWDER AND SOLVENT FOR SOLUTION FOR INJECTION [Suspect]
     Active Substance: DEGARELIX
     Indication: PROSTATE CANCER
     Dosage: 240 MG, ONCE/SINGLE
     Route: 058
     Dates: start: 20150323, end: 20150323
  3. NORVASC [Concomitant]
     Active Substance: AMLODIPINE BESYLATE
  4. OMNIPAQUE [Concomitant]
     Active Substance: IOHEXOL
  5. WARFARIN (WARFARIN) [Concomitant]
     Active Substance: WARFARIN
  6. TAKEPRON (LANSOPRAZOLE) [Concomitant]
     Active Substance: LANSOPRAZOLE

REACTIONS (2)
  - Rash [None]
  - Toxic skin eruption [None]

NARRATIVE: CASE EVENT DATE: 20150403
